FAERS Safety Report 18881209 (Version 1)
Quarter: 2021Q1

REPORT INFORMATION
  Report Type: Spontaneous
  Country: FR (occurrence: FR)
  Receive Date: 20210211
  Receipt Date: 20210211
  Transmission Date: 20210420
  Serious: Yes (Other)
  Sender: FDA-Public Use
  Company Number: FR-ALK-ABELLO A/S-2021AA000451

PATIENT

DRUGS (1)
  1. GRAZAX [Suspect]
     Active Substance: PHLEUM PRATENSE POLLEN
     Indication: IMMUNE TOLERANCE INDUCTION
     Route: 060

REACTIONS (2)
  - Pruritus [Recovered/Resolved]
  - Malaise [Recovered/Resolved]
